FAERS Safety Report 14819406 (Version 2)
Quarter: 2018Q2

REPORT INFORMATION
  Report Type: Report from Study
  Country: US (occurrence: US)
  Receive Date: 20180427
  Receipt Date: 20180531
  Transmission Date: 20180711
  Serious: Yes (Other)
  Sender: FDA-Public Use
  Company Number: US-JNJFOC-20180329917

PATIENT
  Age: 75 Year
  Sex: Female

DRUGS (15)
  1. IMBRUVICA [Suspect]
     Active Substance: IBRUTINIB
     Indication: WALDENSTROM^S MACROGLOBULINAEMIA
     Route: 048
     Dates: start: 20180307, end: 20180403
  2. COMPAZINE [Concomitant]
     Active Substance: PROCHLORPERAZINE MALEATE
  3. INVOKANA [Concomitant]
     Active Substance: CANAGLIFLOZIN
  4. LOSARTAN. [Concomitant]
     Active Substance: LOSARTAN
  5. MAGNESIUM [Concomitant]
     Active Substance: MAGNESIUM
  6. BENADRYL [Concomitant]
     Active Substance: DIPHENHYDRAMINE HYDROCHLORIDE
  7. NEURONTIN [Concomitant]
     Active Substance: GABAPENTIN
  8. LOVASTATIN. [Concomitant]
     Active Substance: LOVASTATIN
  9. METFORMIN [Concomitant]
     Active Substance: METFORMIN HYDROCHLORIDE
  10. ALBUTEROL. [Concomitant]
     Active Substance: ALBUTEROL
  11. ACYCLOVIR. [Concomitant]
     Active Substance: ACYCLOVIR
  12. TESSALON [Concomitant]
     Active Substance: BENZONATATE
  13. IMBRUVICA [Suspect]
     Active Substance: IBRUTINIB
     Indication: WALDENSTROM^S MACROGLOBULINAEMIA
     Route: 048
     Dates: start: 20180309, end: 20180403
  14. LEVEMIR [Concomitant]
     Active Substance: INSULIN DETEMIR
  15. TRAMADOL. [Concomitant]
     Active Substance: TRAMADOL

REACTIONS (5)
  - Diarrhoea [Unknown]
  - Weight decreased [Recovering/Resolving]
  - Pleural effusion [Unknown]
  - Pelvic neoplasm [Unknown]
  - Night sweats [Recovered/Resolved]

NARRATIVE: CASE EVENT DATE: 20180309
